FAERS Safety Report 6698593-7 (Version None)
Quarter: 2010Q2

REPORT INFORMATION
  Report Type: 
  Country: None (occurrence: None)
  Receive Date: 20100427
  Receipt Date: 20100416
  Transmission Date: 20101027
  Serious: Yes (Other)
  Sender: FDA-Public Use
  Company Number: DE-PFIZER INC-2010033685

PATIENT
  Age: 75 Year
  Sex: Male

DRUGS (3)
  1. LYRICA [Suspect]
     Indication: POLYNEUROPATHY
     Dosage: 25 MG, 5XDAY
     Route: 048
     Dates: start: 20040301
  2. LAIF [Concomitant]
     Indication: DEPRESSION
     Dosage: 900 MG, UNK
  3. ST. JOHN'S WORT [Concomitant]
     Indication: DEPRESSION

REACTIONS (14)
  - AGITATION [None]
  - ARRHYTHMIA [None]
  - ASTHENIA [None]
  - BALANCE DISORDER [None]
  - DEPRESSED MOOD [None]
  - DRUG INTOLERANCE [None]
  - FLATULENCE [None]
  - GENERALISED ANXIETY DISORDER [None]
  - HYPERACUSIS [None]
  - IRRITABILITY [None]
  - RESTLESSNESS [None]
  - SENSORY DISTURBANCE [None]
  - SOMNOLENCE [None]
  - TEMPERATURE INTOLERANCE [None]
